FAERS Safety Report 25540000 (Version 4)
Quarter: 2025Q3

REPORT INFORMATION
  Report Type: Spontaneous
  Country: EU (occurrence: EU)
  Receive Date: 20250710
  Receipt Date: 20250813
  Transmission Date: 20251021
  Serious: Yes (Hospitalization, Other)
  Sender: MYLAN
  Company Number: EU-ROCHE-10000316904

PATIENT
  Age: 62 Year
  Sex: Male

DRUGS (72)
  1. DOXORUBICIN [Suspect]
     Active Substance: DOXORUBICIN
     Indication: Mantle cell lymphoma
  2. DOXORUBICIN [Suspect]
     Active Substance: DOXORUBICIN
     Route: 065
  3. DOXORUBICIN [Suspect]
     Active Substance: DOXORUBICIN
     Route: 065
  4. DOXORUBICIN [Suspect]
     Active Substance: DOXORUBICIN
  5. OXALIPLATIN [Suspect]
     Active Substance: OXALIPLATIN
     Indication: Mantle cell lymphoma
  6. OXALIPLATIN [Suspect]
     Active Substance: OXALIPLATIN
     Route: 065
  7. OXALIPLATIN [Suspect]
     Active Substance: OXALIPLATIN
     Route: 065
  8. OXALIPLATIN [Suspect]
     Active Substance: OXALIPLATIN
  9. RITUXIMAB [Suspect]
     Active Substance: RITUXIMAB
     Indication: Mantle cell lymphoma
     Route: 065
  10. RITUXIMAB [Suspect]
     Active Substance: RITUXIMAB
  11. RITUXIMAB [Suspect]
     Active Substance: RITUXIMAB
  12. RITUXIMAB [Suspect]
     Active Substance: RITUXIMAB
     Route: 065
  13. RITUXIMAB [Suspect]
     Active Substance: RITUXIMAB
     Route: 065
  14. RITUXIMAB [Suspect]
     Active Substance: RITUXIMAB
  15. RITUXIMAB [Suspect]
     Active Substance: RITUXIMAB
  16. RITUXIMAB [Suspect]
     Active Substance: RITUXIMAB
     Route: 065
  17. RITUXIMAB [Suspect]
     Active Substance: RITUXIMAB
  18. RITUXIMAB [Suspect]
     Active Substance: RITUXIMAB
  19. RITUXIMAB [Suspect]
     Active Substance: RITUXIMAB
     Route: 065
  20. RITUXIMAB [Suspect]
     Active Substance: RITUXIMAB
     Route: 065
  21. RITUXIMAB [Suspect]
     Active Substance: RITUXIMAB
  22. RITUXIMAB [Suspect]
     Active Substance: RITUXIMAB
  23. RITUXIMAB [Suspect]
     Active Substance: RITUXIMAB
     Route: 065
  24. RITUXIMAB [Suspect]
     Active Substance: RITUXIMAB
     Route: 065
  25. CYCLOPHOSPHAMIDE [Suspect]
     Active Substance: CYCLOPHOSPHAMIDE
     Indication: Mantle cell lymphoma
  26. CYCLOPHOSPHAMIDE [Suspect]
     Active Substance: CYCLOPHOSPHAMIDE
     Route: 065
  27. CYCLOPHOSPHAMIDE [Suspect]
     Active Substance: CYCLOPHOSPHAMIDE
     Route: 065
  28. CYCLOPHOSPHAMIDE [Suspect]
     Active Substance: CYCLOPHOSPHAMIDE
  29. VINCRISTINE [Suspect]
     Active Substance: VINCRISTINE
     Indication: Mantle cell lymphoma
  30. VINCRISTINE [Suspect]
     Active Substance: VINCRISTINE
     Route: 065
  31. VINCRISTINE [Suspect]
     Active Substance: VINCRISTINE
     Route: 065
  32. VINCRISTINE [Suspect]
     Active Substance: VINCRISTINE
  33. PREDNISONE [Suspect]
     Active Substance: PREDNISONE
     Indication: Mantle cell lymphoma
  34. PREDNISONE [Suspect]
     Active Substance: PREDNISONE
     Route: 065
  35. PREDNISONE [Suspect]
     Active Substance: PREDNISONE
     Route: 065
  36. PREDNISONE [Suspect]
     Active Substance: PREDNISONE
  37. DEXAMETHASONE [Suspect]
     Active Substance: DEXAMETHASONE
     Indication: Mantle cell lymphoma
  38. DEXAMETHASONE [Suspect]
     Active Substance: DEXAMETHASONE
     Route: 065
  39. DEXAMETHASONE [Suspect]
     Active Substance: DEXAMETHASONE
     Route: 065
  40. DEXAMETHASONE [Suspect]
     Active Substance: DEXAMETHASONE
  41. CYTARABINE [Suspect]
     Active Substance: CYTARABINE
     Indication: Mantle cell lymphoma
  42. CYTARABINE [Suspect]
     Active Substance: CYTARABINE
  43. CYTARABINE [Suspect]
     Active Substance: CYTARABINE
     Route: 065
  44. CYTARABINE [Suspect]
     Active Substance: CYTARABINE
     Route: 065
  45. CYTARABINE [Suspect]
     Active Substance: CYTARABINE
  46. CYTARABINE [Suspect]
     Active Substance: CYTARABINE
  47. CYTARABINE [Suspect]
     Active Substance: CYTARABINE
     Route: 065
  48. CYTARABINE [Suspect]
     Active Substance: CYTARABINE
     Route: 065
  49. CARMUSTINE [Suspect]
     Active Substance: CARMUSTINE
     Indication: Mantle cell lymphoma
  50. CARMUSTINE [Suspect]
     Active Substance: CARMUSTINE
     Route: 065
  51. CARMUSTINE [Suspect]
     Active Substance: CARMUSTINE
     Route: 065
  52. CARMUSTINE [Suspect]
     Active Substance: CARMUSTINE
  53. ETOPOSIDE [Suspect]
     Active Substance: ETOPOSIDE
     Indication: Mantle cell lymphoma
  54. ETOPOSIDE [Suspect]
     Active Substance: ETOPOSIDE
     Route: 065
  55. ETOPOSIDE [Suspect]
     Active Substance: ETOPOSIDE
     Route: 065
  56. ETOPOSIDE [Suspect]
     Active Substance: ETOPOSIDE
  57. MELPHALAN [Suspect]
     Active Substance: MELPHALAN
     Indication: Mantle cell lymphoma
  58. MELPHALAN [Suspect]
     Active Substance: MELPHALAN
     Route: 065
  59. MELPHALAN [Suspect]
     Active Substance: MELPHALAN
     Route: 065
  60. MELPHALAN [Suspect]
     Active Substance: MELPHALAN
  61. IBRUTINIB [Suspect]
     Active Substance: IBRUTINIB
     Indication: Mantle cell lymphoma
  62. IBRUTINIB [Suspect]
     Active Substance: IBRUTINIB
     Route: 065
  63. IBRUTINIB [Suspect]
     Active Substance: IBRUTINIB
     Route: 065
  64. IBRUTINIB [Suspect]
     Active Substance: IBRUTINIB
  65. METHOTREXATE [Suspect]
     Active Substance: METHOTREXATE
     Indication: Mantle cell lymphoma
  66. METHOTREXATE [Suspect]
     Active Substance: METHOTREXATE
     Route: 065
  67. METHOTREXATE [Suspect]
     Active Substance: METHOTREXATE
     Route: 065
  68. METHOTREXATE [Suspect]
     Active Substance: METHOTREXATE
  69. THIOTEPA [Suspect]
     Active Substance: THIOTEPA
     Indication: Mantle cell lymphoma
  70. THIOTEPA [Suspect]
     Active Substance: THIOTEPA
     Route: 065
  71. THIOTEPA [Suspect]
     Active Substance: THIOTEPA
     Route: 065
  72. THIOTEPA [Suspect]
     Active Substance: THIOTEPA

REACTIONS (9)
  - Disease recurrence [Recovered/Resolved]
  - Ileus [Recovered/Resolved]
  - Enterocolitis [Recovered/Resolved]
  - Febrile neutropenia [Unknown]
  - Neutropenia [Unknown]
  - Lymphocytosis [Unknown]
  - Subileus [Unknown]
  - Stomatitis [Unknown]
  - Off label use [Unknown]

NARRATIVE: CASE EVENT DATE: 20230101
